FAERS Safety Report 7783258-0 (Version None)
Quarter: 2011Q3

REPORT INFORMATION
  Report Type: 
  Country: None (occurrence: None)
  Receive Date: 20110928
  Receipt Date: 20110916
  Transmission Date: 20111222
  Serious: Yes (Other)
  Sender: FDA-Public Use
  Company Number: US-JNJFOC-20110908628

PATIENT
  Sex: Male
  Weight: 97.52 kg

DRUGS (5)
  1. LIPITOR [Concomitant]
     Indication: BLOOD CHOLESTEROL INCREASED
     Route: 048
  2. REMICADE [Suspect]
     Dosage: ^HALF THE DOSE^
     Route: 042
     Dates: start: 20110527, end: 20110527
  3. REMICADE [Suspect]
     Indication: CROHN'S DISEASE
     Route: 042
     Dates: start: 20110318, end: 20110527
  4. OMEPRAZOLE [Concomitant]
     Indication: GASTROOESOPHAGEAL REFLUX DISEASE
     Route: 048
  5. LISINOPRIL [Concomitant]
     Indication: HYPERTENSION
     Route: 048

REACTIONS (5)
  - PYREXIA [None]
  - INFUSION RELATED REACTION [None]
  - URTICARIA [None]
  - DYSPNOEA [None]
  - RESPIRATORY DISTRESS [None]
